FAERS Safety Report 7356527-6 (Version None)
Quarter: 2011Q1

REPORT INFORMATION
  Report Type: 
  Country: None (occurrence: None)
  Receive Date: 20110316
  Receipt Date: 20110302
  Transmission Date: 20110831
  Serious: Yes (Other)
  Sender: FDA-Public Use
  Company Number: PHHY2011KR18388

PATIENT
  Age: 53 Year

DRUGS (1)
  1. CLOZARIL [Suspect]
     Dosage: UNK
     Route: 048
     Dates: start: 20101223, end: 20110222

REACTIONS (2)
  - TONSILLITIS [None]
  - NEUTROPENIA [None]
